FAERS Safety Report 8463767-1 (Version None)
Quarter: 2012Q2

REPORT INFORMATION
  Report Type: 
  Country: None (occurrence: None)
  Receive Date: 20120625
  Receipt Date: 20120615
  Transmission Date: 20120825
  Serious: Yes (Other)
  Sender: FDA-Public Use
  Company Number: CA-PERRIGO-12CA003799

PATIENT
  Sex: Female

DRUGS (5)
  1. CALCIUM CARBONATE [Suspect]
     Dosage: 1000 MG, SINGLE
     Route: 048
     Dates: start: 20110101, end: 20110101
  2. ANTIHYPERTENSIVES [Concomitant]
     Indication: HYPERTENSION
     Dosage: UNK
     Route: 065
  3. UNSPECIFIED MEDICATION FOR ARTHRITIS [Concomitant]
     Indication: ARTHRITIS
     Dosage: UNK
     Route: 065
  4. CALCIUM CARBONATE [Suspect]
     Dosage: PRN
     Route: 048
     Dates: start: 20100101
  5. CALCIUM CARBONATE [Suspect]
     Indication: DYSPEPSIA
     Dosage: 1000 MG, SINGLE
     Route: 048
     Dates: start: 20110101, end: 20110101

REACTIONS (6)
  - PALPITATIONS [None]
  - URTICARIA [None]
  - ANAPHYLACTIC REACTION [None]
  - PRURITUS [None]
  - EXPIRED DRUG ADMINISTERED [None]
  - SWOLLEN TONGUE [None]
